FAERS Safety Report 11887753 (Version 1)
Quarter: 2016Q1

REPORT INFORMATION
  Report Type: Other
  Country: CA (occurrence: CA)
  Receive Date: 20160105
  Receipt Date: 20160105
  Transmission Date: 20160526
  Serious: Yes (Other)
  Sender: FDA-Public Use
  Company Number: CA-APOTEX-2015AP015532

PATIENT
  Age: 26 Year
  Sex: Male

DRUGS (1)
  1. APO-ALFUZOSIN [Suspect]
     Active Substance: ALFUZOSIN HYDROCHLORIDE
     Indication: PRODUCT USED FOR UNKNOWN INDICATION
     Dosage: UNK
     Route: 065

REACTIONS (3)
  - Ear congestion [Unknown]
  - Hypoacusis [Unknown]
  - Nasal congestion [Unknown]
